FAERS Safety Report 23154206 (Version 1)
Quarter: 2023Q4

REPORT INFORMATION
  Report Type: Spontaneous
  Country: FR (occurrence: FR)
  Receive Date: 20231107
  Receipt Date: 20231107
  Transmission Date: 20240110
  Serious: Yes (Hospitalization)
  Sender: FDA-Public Use
  Company Number: FR-SUN PHARMACEUTICAL INDUSTRIES LTD-2023RR-416477

PATIENT
  Age: 69 Year
  Sex: Male
  Weight: 88 kg

DRUGS (8)
  1. VALACYCLOVIR [Suspect]
     Active Substance: VALACYCLOVIR HYDROCHLORIDE
     Indication: Opportunistic infection prophylaxis
     Dosage: 1 GRAM, DAILY
     Route: 048
  2. FUROSEMIDE [Suspect]
     Active Substance: FUROSEMIDE
     Indication: Diuretic therapy
     Dosage: 40 MILLIGRAM, DAILY
     Route: 048
  3. REPAGLINIDE [Suspect]
     Active Substance: REPAGLINIDE
     Indication: Type 2 diabetes mellitus
     Dosage: 1.5 MILLIGRAM, DAILY
     Route: 048
  4. RUXOLITINIB [Suspect]
     Active Substance: RUXOLITINIB
     Indication: Cutaneous T-cell lymphoma
     Dosage: 1 DOSAGE FORM, DAILY
     Route: 048
     Dates: end: 20230630
  5. DEXAMETHASONE [Suspect]
     Active Substance: DEXAMETHASONE
     Indication: Cutaneous T-cell lymphoma
     Dosage: 60 MILLIGRAM, 1/WEEK
     Route: 048
  6. BACTRIM [Suspect]
     Active Substance: SULFAMETHOXAZOLE\TRIMETHOPRIM
     Indication: Opportunistic infection prophylaxis
     Dosage: 3 DOSAGE FORM, 1/WEEK
     Route: 048
  7. LANSOPRAZOLE [Suspect]
     Active Substance: LANSOPRAZOLE
     Indication: Prophylaxis
     Dosage: 15 MILLIGRAM, DAILY
     Route: 048
  8. INNOHEP [Concomitant]
     Active Substance: TINZAPARIN SODIUM
     Indication: Product used for unknown indication
     Dosage: 12000 INTERNATIONAL UNIT, DAILY
     Route: 058
     Dates: end: 20230630

REACTIONS (1)
  - Ischaemic stroke [Recovering/Resolving]

NARRATIVE: CASE EVENT DATE: 20230630
